FAERS Safety Report 9546818 (Version 2)
Quarter: 2014Q1

REPORT INFORMATION
  Report Type: Report from Study
  Country: US (occurrence: US)
  Receive Date: 20130924
  Receipt Date: 20140109
  Transmission Date: 20141002
  Serious: Yes (Hospitalization)
  Sender: FDA-Public Use
  Company Number: US-ALEXION-A201202628

PATIENT
  Sex: Female
  Weight: 9.1 kg

DRUGS (3)
  1. SOLIRIS [Suspect]
     Indication: HAEMOLYTIC URAEMIC SYNDROME
     Dosage: UNK
     Route: 042
  2. SOLIRIS [Suspect]
     Dosage: 700 MG Q3W
     Route: 042
  3. SOLIRIS [Suspect]
     Dosage: 700 MG, Q2W
     Route: 042
     Dates: start: 201309

REACTIONS (5)
  - Platelet count decreased [Recovering/Resolving]
  - Red blood cell count decreased [Recovering/Resolving]
  - Blood urine present [Recovered/Resolved]
  - Therapy responder [Recovering/Resolving]
  - Inappropriate schedule of drug administration [Recovered/Resolved]
